FAERS Safety Report 8375156-9 (Version None)
Quarter: 2012Q2

REPORT INFORMATION
  Report Type: 
  Country: None (occurrence: None)
  Receive Date: 20120521
  Receipt Date: 20120517
  Transmission Date: 20120825
  Serious: Yes (Hospitalization, Other)
  Sender: FDA-Public Use
  Company Number: US-RB-039764-12

PATIENT
  Sex: Female

DRUGS (3)
  1. SUBOXONE [Suspect]
     Indication: DRUG DEPENDENCE
     Route: 060
     Dates: start: 20100101, end: 20110101
  2. PROZAC [Suspect]
     Indication: DEPRESSION
     Dosage: UNKNOWN DOSAGE DETAILS
     Route: 048
     Dates: start: 20120401
  3. BUPRENORPHINE [Suspect]
     Indication: DRUG DEPENDENCE
     Route: 060
     Dates: start: 20110101

REACTIONS (4)
  - WEIGHT DECREASED [None]
  - MATERNAL EXPOSURE DURING PREGNANCY [None]
  - STILLBIRTH [None]
  - DEPRESSION [None]
